FAERS Safety Report 12873306 (Version 1)
Quarter: 2016Q4

REPORT INFORMATION
  Report Type: Spontaneous
  Country: US (occurrence: US)
  Receive Date: 20161021
  Receipt Date: 20161021
  Transmission Date: 20170207
  Serious: No
  Sender: FDA-Public Use
  Company Number: US-ALLERGAN-1525211US

PATIENT
  Sex: Female

DRUGS (2)
  1. RESTASIS [Concomitant]
     Active Substance: CYCLOSPORINE
     Indication: DRY EYE
     Dosage: UNK, BID
     Route: 047
  2. FML [Suspect]
     Active Substance: FLUOROMETHOLONE
     Indication: BLEPHARITIS
     Dosage: UNK, QD
     Route: 061
     Dates: start: 20151009

REACTIONS (1)
  - Drug ineffective [Unknown]
